FAERS Safety Report 9001682 (Version 1)
Quarter: 2013Q1

REPORT INFORMATION
  Report Type: Spontaneous
  Country: US (occurrence: US)
  Receive Date: 20130107
  Receipt Date: 20130107
  Transmission Date: 20140127
  Serious: Yes (Other)
  Sender: FDA-Public Use
  Company Number: US-BAYER-2013-001372

PATIENT
  Age: 69 Year
  Sex: Female
  Weight: 48.98 kg

DRUGS (3)
  1. BRONKAID [Suspect]
     Indication: CHRONIC OBSTRUCTIVE PULMONARY DISEASE
     Dosage: 1 DF, QD
     Route: 048
  2. ALBUTEROL [Concomitant]
  3. SUPPLEMENTS [Concomitant]

REACTIONS (3)
  - Drug dependence [None]
  - Incorrect drug administration duration [None]
  - Off label use [None]
